FAERS Safety Report 6214456-5 (Version None)
Quarter: 2009Q2

REPORT INFORMATION
  Report Type: 
  Country: None (occurrence: None)
  Receive Date: 20090529
  Receipt Date: 20090414
  Transmission Date: 20091009
  Serious: Yes (Hospitalization)
  Sender: FDA-Public Use
  Company Number: 1-18178484

PATIENT
  Sex: Female

DRUGS (1)
  1. QUININE (MANUFACTURER UNKNOWN) [Suspect]
     Indication: MUSCLE SPASMS
     Dosage: ORAL
     Route: 048
     Dates: start: 20060203, end: 20070307

REACTIONS (2)
  - THROMBOCYTOPENIA [None]
  - UNEVALUABLE EVENT [None]
